FAERS Safety Report 13448812 (Version 1)
Quarter: 2017Q2

REPORT INFORMATION
  Report Type: Spontaneous
  Country: US (occurrence: US)
  Receive Date: 20170417
  Receipt Date: 20170417
  Transmission Date: 20170830
  Serious: No
  Sender: FDA-Public Use
  Company Number: US-SHIONOGI, INC-2016001034

PATIENT
  Sex: Female

DRUGS (2)
  1. OSPHENA [Suspect]
     Active Substance: OSPEMIFENE
     Dosage: 30 MG, QD
     Route: 065
     Dates: start: 201610
  2. OSPHENA [Suspect]
     Active Substance: OSPEMIFENE
     Indication: PRODUCT USED FOR UNKNOWN INDICATION
     Dosage: 60 MG, QD
     Route: 065
     Dates: start: 201610

REACTIONS (3)
  - Feeling abnormal [Unknown]
  - Prescribed underdose [Unknown]
  - Muscle spasms [Unknown]

NARRATIVE: CASE EVENT DATE: 201610
